FAERS Safety Report 7397791-7 (Version None)
Quarter: 2011Q2

REPORT INFORMATION
  Report Type: 
  Country: None (occurrence: None)
  Receive Date: 20110406
  Receipt Date: 20110404
  Transmission Date: 20111010
  Serious: Yes (Other)
  Sender: FDA-Public Use
  Company Number: JP-PFIZER INC-2011070013

PATIENT
  Age: 81 Year
  Sex: Male

DRUGS (2)
  1. TEGRETOL [Suspect]
  2. ALDACTONE [Suspect]
     Dosage: 25 MG, 1X/DAY
     Route: 048
     Dates: start: 20110323

REACTIONS (1)
  - HYPERAMMONAEMIA [None]
